FAERS Safety Report 10726224 (Version 2)
Quarter: 2015Q1

REPORT INFORMATION
  Report Type: Spontaneous
  Country: GR (occurrence: GR)
  Receive Date: 20150121
  Receipt Date: 20150302
  Transmission Date: 20150721
  Serious: Yes (Other)
  Sender: FDA-Public Use
  Company Number: PHHY2014GR162107

PATIENT
  Sex: Female

DRUGS (7)
  1. TASIGNA [Suspect]
     Active Substance: NILOTINIB
     Indication: CHRONIC MYELOID LEUKAEMIA
     Dosage: 300 MG, BID (150 MG X 2, BID)
     Route: 048
     Dates: start: 201306
  2. TASIGNA [Interacting]
     Active Substance: NILOTINIB
     Dosage: 450 MG, QD
     Route: 048
  3. TASIGNA [Interacting]
     Active Substance: NILOTINIB
     Dosage: 600 MG, QD
     Route: 048
  4. ALOPERIDIN [Interacting]
     Active Substance: HALOPERIDOL
     Indication: DEPRESSION
     Route: 065
  5. TASIGNA [Interacting]
     Active Substance: NILOTINIB
     Dosage: 300 MG, QD
     Route: 048
  6. TASIGNA [Interacting]
     Active Substance: NILOTINIB
     Dosage: 300 MG, QD
     Route: 048
     Dates: start: 201308
  7. ZOLOFT [Interacting]
     Active Substance: SERTRALINE HYDROCHLORIDE
     Indication: DEPRESSION
     Route: 065

REACTIONS (5)
  - Blood bilirubin increased [Not Recovered/Not Resolved]
  - Pruritus [Recovered/Resolved]
  - Gamma-glutamyltransferase increased [Not Recovered/Not Resolved]
  - Drug interaction [Unknown]
  - Jaundice [Recovered/Resolved]

NARRATIVE: CASE EVENT DATE: 201308
